FAERS Safety Report 19075222 (Version 1)
Quarter: 2021Q1

REPORT INFORMATION
  Report Type: Spontaneous
  Country: US (occurrence: US)
  Receive Date: 20210330
  Receipt Date: 20210330
  Transmission Date: 20210420
  Serious: No
  Sender: FDA-Public Use
  Company Number: US-ROCHE-2577192

PATIENT
  Age: 56 Year
  Sex: Female
  Weight: 51.3 kg

DRUGS (4)
  1. ERIVEDGE [Suspect]
     Active Substance: VISMODEGIB
     Indication: BASAL CELL CARCINOMA
     Dosage: 150 MG ONCE A DAY BY MOUTH, 1 WEEK ON?1 WEEK OFF
     Route: 048
  2. PROMETHAZINE [Concomitant]
     Active Substance: PROMETHAZINE HYDROCHLORIDE
  3. AMOXICILLIN. [Concomitant]
     Active Substance: AMOXICILLIN
  4. CODEINE [Concomitant]
     Active Substance: CODEINE

REACTIONS (4)
  - Off label use [Unknown]
  - Acute sinusitis [Not Recovered/Not Resolved]
  - Productive cough [Recovering/Resolving]
  - Intentional product misuse [Unknown]

NARRATIVE: CASE EVENT DATE: 201903
